FAERS Safety Report 17828642 (Version 1)
Quarter: 2020Q2

REPORT INFORMATION
  Report Type: Spontaneous
  Country: ES (occurrence: ES)
  Receive Date: 20200527
  Receipt Date: 20200527
  Transmission Date: 20200714
  Serious: Yes (Other)
  Sender: FDA-Public Use
  Company Number: ES-MYLANLABS-2020M1051460

PATIENT
  Age: 41 Year
  Sex: Male

DRUGS (5)
  1. RIFAMPICIN [Suspect]
     Active Substance: RIFAMPIN
     Indication: STAPHYLOCOCCAL INFECTION
     Dosage: 600 MILLIGRAM, QD
     Route: 065
  2. SEVOFLURANE. [Concomitant]
     Active Substance: SEVOFLURANE
     Indication: IRRIGATION THERAPY
     Dosage: IRRIGATION FOR 4-5 MINUTES
     Route: 061
  3. SEVOFLURANE. [Concomitant]
     Active Substance: SEVOFLURANE
     Indication: STAPHYLOCOCCAL INFECTION
     Dosage: 5 MILLILITER, QD
     Route: 061
  4. LEVOFLOXACIN. [Suspect]
     Active Substance: LEVOFLOXACIN
     Indication: STAPHYLOCOCCAL INFECTION
     Dosage: 500 MILLIGRAM, QD
     Route: 065
  5. SEVOFLURANE. [Concomitant]
     Active Substance: SEVOFLURANE
     Dosage: 5 MILLILITER
     Route: 061

REACTIONS (1)
  - Drug ineffective [Unknown]
